FAERS Safety Report 13900830 (Version 2)
Quarter: 2017Q3

REPORT INFORMATION
  Report Type: Spontaneous
  Country: US (occurrence: US)
  Receive Date: 20170824
  Receipt Date: 20170907
  Transmission Date: 20171127
  Serious: Yes (Other)
  Sender: FDA-Public Use
  Company Number: US-PFIZER INC-2017361455

PATIENT
  Age: 16 Year
  Sex: Male

DRUGS (3)
  1. CYPROHEPTADINE. [Concomitant]
     Active Substance: CYPROHEPTADINE
     Indication: MIGRAINE
     Dosage: UNK
  2. SOMATROPIN. [Suspect]
     Active Substance: SOMATROPIN
     Indication: NOONAN SYNDROME
     Dosage: 0.35 MG/KG, WEEKLY
  3. SOMATROPIN. [Suspect]
     Active Substance: SOMATROPIN
     Dosage: 0.4 MG/KG, WEEKLY

REACTIONS (3)
  - Migraine [Recovering/Resolving]
  - Condition aggravated [Recovering/Resolving]
  - Astrocytoma, low grade [Recovering/Resolving]
